FAERS Safety Report 7352047-3 (Version None)
Quarter: 2011Q1

REPORT INFORMATION
  Report Type: 
  Country: None (occurrence: None)
  Receive Date: 20110315
  Receipt Date: 20110309
  Transmission Date: 20110831
  Serious: Yes (Other)
  Sender: FDA-Public Use
  Company Number: GB-JNJFOC-2010028243

PATIENT
  Sex: Male
  Weight: 145 kg

DRUGS (1)
  1. NICORETTE [Suspect]
     Indication: SMOKING CESSATION THERAPY
     Dosage: DAILY DOSE TEXT: UNKNOWN
     Route: 048

REACTIONS (2)
  - DEPENDENCE [None]
  - INTENTIONAL DRUG MISUSE [None]
